FAERS Safety Report 9063205 (Version 4)
Quarter: 2013Q1

REPORT INFORMATION
  Report Type: Spontaneous
  Country: US (occurrence: US)
  Receive Date: 20130213
  Receipt Date: 20130326
  Transmission Date: 20140127
  Serious: Yes (Death, Other)
  Sender: FDA-Public Use
  Company Number: US-GLAXOSMITHKLINE-A0905526A

PATIENT
  Age: 45 Year
  Sex: Male
  Weight: 63 kg

DRUGS (9)
  1. FLOLAN [Suspect]
     Indication: PULMONARY ARTERIAL HYPERTENSION
     Dosage: 22NGKM CONTINUOUS
     Route: 042
     Dates: start: 20041005
  2. FLOLAN DILUENT [Suspect]
     Route: 042
  3. CENTRUM [Concomitant]
     Route: 048
  4. COUMADIN [Concomitant]
     Dosage: 2MG UNKNOWN
     Route: 048
  5. ENSURE [Concomitant]
     Route: 048
  6. MEGESTROL [Concomitant]
     Dosage: 40MGML UNKNOWN
  7. OXYCODONE HCL + APAP [Concomitant]
     Route: 048
  8. OXYGEN [Concomitant]
  9. ADCIRCA [Concomitant]

REACTIONS (3)
  - Cardiac arrest [Fatal]
  - Nightmare [Unknown]
  - Pain in extremity [Not Recovered/Not Resolved]
